FAERS Safety Report 5003982-2 (Version None)
Quarter: 2006Q2

REPORT INFORMATION
  Report Type: 
  Country: None (occurrence: None)
  Receive Date: 20060515
  Receipt Date: 20060515
  Transmission Date: 20061013
  Serious: Yes (Other)
  Sender: FDA-Public Use
  Company Number: None

PATIENT
  Sex: Female
  Weight: 53.978 kg

DRUGS (3)
  1. LEVAQUIN [Suspect]
     Indication: SINUSITIS
     Dosage: 1 PILL   2X A DAY   PO
     Route: 048
     Dates: start: 20060502, end: 20060502
  2. DEPAKOTE [Concomitant]
  3. SYNTHROID [Concomitant]

REACTIONS (1)
  - CONVULSION [None]
